FAERS Safety Report 16084827 (Version 1)
Quarter: 2019Q1

REPORT INFORMATION
  Report Type: Spontaneous
  Country: US (occurrence: US)
  Receive Date: 20190318
  Receipt Date: 20190318
  Transmission Date: 20190418
  Serious: No
  Sender: FDA-Public Use
  Company Number: US-AVADEL SPECIALTY PHARMACEUTICALS, LLC-2018AVA00547

PATIENT
  Age: 87 Year
  Sex: Male

DRUGS (6)
  1. ASPIRIN. [Concomitant]
     Active Substance: ASPIRIN
  2. NOCTIVA [Suspect]
     Active Substance: DESMOPRESSIN ACETATE
     Indication: NOCTURIA
     Dosage: 0.83 ?G, 1X/DAY BEFORE BEDTIME
     Route: 045
     Dates: start: 20181107, end: 201811
  3. MELOXICAM. [Concomitant]
     Active Substance: MELOXICAM
  4. VITAMIN C [Concomitant]
     Active Substance: ASCORBIC ACID
  5. GABAPENTIN. [Concomitant]
     Active Substance: GABAPENTIN
  6. BIOTIN [Concomitant]
     Active Substance: BIOTIN

REACTIONS (4)
  - Hypersensitivity [Unknown]
  - Sneezing [Unknown]
  - Rhinorrhoea [Unknown]
  - Drug ineffective [Recovered/Resolved]

NARRATIVE: CASE EVENT DATE: 201811
